FAERS Safety Report 14624606 (Version 1)
Quarter: 2020Q3

REPORT INFORMATION
  Report Type: Spontaneous
  Country: AU (occurrence: AU)
  Receive Date: 20180312
  Receipt Date: 20180312
  Transmission Date: 20201104
  Serious: Yes (Other)
  Sender: FDA-Public Use
  Company Number: AU-ROCHE-2081814

PATIENT
  Age: 63 Year
  Sex: Female

DRUGS (1)
  1. ALECTINIB. [Suspect]
     Active Substance: ALECTINIB
     Indication: LUNG NEOPLASM MALIGNANT
     Route: 065
     Dates: start: 201411

REACTIONS (2)
  - Pleural effusion [Unknown]
  - Hepatic neoplasm [Unknown]
